FAERS Safety Report 25432119 (Version 1)
Quarter: 2025Q2

REPORT INFORMATION
  Report Type: Spontaneous
  Country: IT (occurrence: IT)
  Receive Date: 20250613
  Receipt Date: 20250613
  Transmission Date: 20250717
  Serious: Yes (Hospitalization, Other)
  Sender: RANBAXY
  Company Number: IT-SUN PHARMACEUTICAL INDUSTRIES LTD-2025R1-510990

PATIENT
  Sex: Male
  Weight: 3.2 kg

DRUGS (2)
  1. ASPIRIN [Suspect]
     Active Substance: ASPIRIN
     Indication: Product used for unknown indication
     Route: 064
  2. LEVOTHYROXINE SODIUM [Suspect]
     Active Substance: LEVOTHYROXINE SODIUM
     Indication: Hypothyroidism
     Route: 064

REACTIONS (5)
  - Foetal exposure during pregnancy [Unknown]
  - Cerebellar haemorrhage [Recovering/Resolving]
  - Cerebral venous sinus thrombosis [Recovering/Resolving]
  - Hyperglycaemia [Recovering/Resolving]
  - Respiratory distress [Recovering/Resolving]
